FAERS Safety Report 22308007 (Version 1)
Quarter: 2023Q2

REPORT INFORMATION
  Report Type: Spontaneous
  Country: US (occurrence: None)
  Receive Date: 20230509
  Receipt Date: 20230509
  Transmission Date: 20230721
  Serious: Yes (Life-Threatening, Hospitalization)
  Sender: FDA-Public Use
  Company Number: None

PATIENT
  Age: 71 Year
  Sex: Female
  Weight: 61.23 kg

DRUGS (4)
  1. ESCITALOPRAM OXALATE [Suspect]
     Active Substance: ESCITALOPRAM OXALATE
     Indication: Depression
     Dosage: FREQUENCY : AT BEDTIME;?
     Route: 048
     Dates: start: 20221028, end: 20230407
  2. KLONOPIN [Concomitant]
     Active Substance: CLONAZEPAM
  3. B-Complex 100 [Concomitant]
  4. Vitamin D-3 + K-2 [Concomitant]

REACTIONS (18)
  - Blepharospasm [None]
  - Eye pain [None]
  - Muscle rigidity [None]
  - Brain fog [None]
  - Confusional state [None]
  - Disturbance in attention [None]
  - Mental impairment [None]
  - Memory impairment [None]
  - Balance disorder [None]
  - Asthenia [None]
  - Malaise [None]
  - Depression [None]
  - Apathy [None]
  - Constipation [None]
  - Decreased appetite [None]
  - Weight decreased [None]
  - Tinnitus [None]
  - Nasopharyngitis [None]

NARRATIVE: CASE EVENT DATE: 20230123
